FAERS Safety Report 12246550 (Version 1)
Quarter: 2016Q2

REPORT INFORMATION
  Report Type: Spontaneous
  Country: US (occurrence: US)
  Receive Date: 20160407
  Receipt Date: 20160407
  Transmission Date: 20160815
  Serious: Yes (Hospitalization, Other)
  Sender: FDA-Public Use
  Company Number: US-SIGMA-TAU US-2016STPI000254

PATIENT
  Age: 3 Month
  Sex: Male

DRUGS (11)
  1. ADAGEN [Suspect]
     Active Substance: PEGADEMASE BOVINE
     Dosage: 375 IU, BIW
     Route: 030
  2. IVIGLOB EX [Concomitant]
     Active Substance: HUMAN IMMUNOGLOBULIN G
     Indication: COMBINED IMMUNODEFICIENCY
  3. BACTRIM [Concomitant]
     Active Substance: SULFAMETHOXAZOLE\TRIMETHOPRIM
  4. ADAGEN [Suspect]
     Active Substance: PEGADEMASE BOVINE
     Indication: COMBINED IMMUNODEFICIENCY
     Dosage: 30 IU/KG, BIW
     Route: 030
  5. ADAGEN [Suspect]
     Active Substance: PEGADEMASE BOVINE
     Dosage: 375 IU, QW
     Route: 030
  6. KETOCONAZOLE W/PYRITHIONE ZINC [Concomitant]
     Indication: ORAL CANDIDIASIS
  7. NYSTATIN. [Concomitant]
     Active Substance: NYSTATIN
     Indication: ORAL CANDIDIASIS
  8. CEFUROXIME. [Concomitant]
     Active Substance: CEFUROXIME
     Indication: URINARY TRACT INFECTION
  9. VARICELLA ZOSTER IMMUNE GLOBULIN (HUMAN) [Suspect]
     Active Substance: HUMAN VARICELLA-ZOSTER IMMUNE GLOBULIN
     Indication: PROPHYLAXIS
  10. CEFTRIAXONE. [Concomitant]
     Active Substance: CEFTRIAXONE
     Indication: PNEUMONIA
  11. CEFTRIAXONE. [Concomitant]
     Active Substance: CEFTRIAXONE
     Indication: OTITIS MEDIA

REACTIONS (7)
  - Encephalitis [Recovered/Resolved]
  - Pneumonia [Recovered/Resolved]
  - Glomerulonephritis membranous [Recovered/Resolved]
  - Bacteraemia [Recovered/Resolved]
  - Otitis media acute [Recovered/Resolved]
  - Urinary tract infection [None]
  - Respiratory tract infection [Recovered/Resolved]
